FAERS Safety Report 17681635 (Version 2)
Quarter: 2020Q2

REPORT INFORMATION
  Report Type: Spontaneous
  Country: US (occurrence: US)
  Receive Date: 20200417
  Receipt Date: 20200422
  Transmission Date: 20200714
  Serious: Yes (Life-Threatening, Other)
  Sender: FDA-Public Use
  Company Number: US-TAKEDA-2020TUS018745

PATIENT
  Age: 33 Year
  Sex: Female

DRUGS (1)
  1. COLCHICINE. [Suspect]
     Active Substance: COLCHICINE
     Indication: PERICARDITIS
     Dosage: 0.6 MILLIGRAM, BID
     Route: 065

REACTIONS (7)
  - Myocardial necrosis [Unknown]
  - Multiple organ dysfunction syndrome [Unknown]
  - Intentional overdose [Unknown]
  - Cardiac failure congestive [Unknown]
  - Cardiogenic shock [Unknown]
  - Circulatory collapse [Unknown]
  - Off label use [Unknown]
